FAERS Safety Report 7068959-4 (Version None)
Quarter: 2010Q4

REPORT INFORMATION
  Report Type: 
  Country: None (occurrence: None)
  Receive Date: 20101020
  Receipt Date: 20101005
  Transmission Date: 20110411
  Serious: Yes (Hospitalization)
  Sender: FDA-Public Use
  Company Number: DSA_33518_2009

PATIENT
  Age: 80 Year
  Sex: Male

DRUGS (8)
  1. ENALAPRIL MALEATE [Suspect]
     Indication: HYPERTENSION
     Dosage: (10 MG BID ORAL)
     Route: 048
     Dates: start: 19970101, end: 20080705
  2. ETORICOXIB (ETORICOXIB) [Suspect]
     Indication: PAIN IN EXTREMITY
     Dosage: (90 MG QD ORAL)
     Route: 048
     Dates: start: 20080615, end: 20080705
  3. TRIAMTERENE (TRIAMTERENE) [Suspect]
     Indication: HYPERTENSION
     Dosage: 1 DF QD ORAL
     Route: 048
     Dates: start: 20040101, end: 20080705
  4. BISOPROLOL FUMARATE [Concomitant]
  5. FALITHROM [Concomitant]
  6. ISOSORBIDE DINITRATE [Concomitant]
  7. PK-MERZ [Concomitant]
  8. ZOCOR [Concomitant]

REACTIONS (5)
  - BLOOD POTASSIUM INCREASED [None]
  - HUMERUS FRACTURE [None]
  - PAIN [None]
  - RENAL FAILURE ACUTE [None]
  - TUBULOINTERSTITIAL NEPHRITIS [None]
